FAERS Safety Report 18342886 (Version 1)
Quarter: 2020Q4

REPORT INFORMATION
  Report Type: Spontaneous
  Country: US (occurrence: US)
  Receive Date: 20201002
  Receipt Date: 20201002
  Transmission Date: 20210113
  Serious: Yes (Death)
  Sender: FDA-Public Use
  Company Number: None

PATIENT
  Age: 65 Year
  Sex: Male
  Weight: 56 kg

DRUGS (12)
  1. ABACAVIR+LAMIVUDINE+DOLUTEGRAVIR [Concomitant]
  2. NEULASTA [Concomitant]
     Active Substance: PEGFILGRASTIM
  3. GEMCITABINE. [Suspect]
     Active Substance: GEMCITABINE
     Indication: CHOLANGIOCARCINOMA
     Dosage: ?          OTHER FREQUENCY:DAY 1 + 8 Q 21D;?
     Route: 042
     Dates: start: 20200910, end: 20200923
  4. CHLORPROMAZINE. [Concomitant]
     Active Substance: CHLORPROMAZINE
  5. FERROUS SULFATE. [Concomitant]
     Active Substance: FERROUS SULFATE
  6. ONDANSETRON 8 MG TABLET [Concomitant]
     Active Substance: ONDANSETRON
  7. CISPLATIN. [Suspect]
     Active Substance: CISPLATIN
     Indication: CHOLANGIOCARCINOMA
     Dosage: ?          OTHER FREQUENCY:DAY 1 + 8 Q 21D;?
     Route: 042
     Dates: start: 20200910, end: 20200923
  8. MIRTAZAPINE. [Concomitant]
     Active Substance: MIRTAZAPINE
  9. ENALAPRIL [Concomitant]
     Active Substance: ENALAPRIL
  10. 0.9% SODIUM CHLORIDE INFUSION [Concomitant]
  11. ASCORBIC ACID. [Concomitant]
     Active Substance: ASCORBIC ACID
  12. ENOXAPARIN [Concomitant]
     Active Substance: ENOXAPARIN

REACTIONS (1)
  - Death [None]

NARRATIVE: CASE EVENT DATE: 20200923
